FAERS Safety Report 16128128 (Version 1)
Quarter: 2019Q1

REPORT INFORMATION
  Report Type: Spontaneous
  Country: US (occurrence: US)
  Receive Date: 20190328
  Receipt Date: 20190328
  Transmission Date: 20190418
  Serious: Yes (Hospitalization, Other)
  Sender: FDA-Public Use
  Company Number: US-PFIZER INC-2019126532

PATIENT
  Age: 49 Year
  Sex: Male

DRUGS (2)
  1. IBUPROFEN. [Concomitant]
     Active Substance: IBUPROFEN
     Indication: ANALGESIC INTERVENTION SUPPORTIVE THERAPY
     Dosage: UNK (ONE-WEEK SUPPLY OF STANDARD-DOSE)
  2. CIPROFLOXACIN. [Suspect]
     Active Substance: CIPROFLOXACIN
     Indication: ANTIBIOTIC PROPHYLAXIS
     Dosage: UNK (ONE WEEK COURSE, STANDARD-DOSE)

REACTIONS (3)
  - Stevens-Johnson syndrome [Unknown]
  - Product use in unapproved indication [Unknown]
  - Food interaction [Unknown]
